FAERS Safety Report 4386291-4 (Version None)
Quarter: 2004Q2

REPORT INFORMATION
  Report Type: 
  Country: None (occurrence: None)
  Receive Date: 20040623
  Receipt Date: 20040617
  Transmission Date: 20050107
  Serious: Yes (Hospitalization, Disabling)
  Sender: FDA-Public Use
  Company Number: 2004216496US

PATIENT
  Age: 65 Year
  Sex: Female
  Weight: 45.4 kg

DRUGS (3)
  1. CELEBREX [Suspect]
     Dosage: 20 MG, QD
     Dates: start: 20040401
  2. COUMADIN [Suspect]
     Dosage: 5 MG, QD
     Dates: start: 19820101
  3. VALIUM [Concomitant]

REACTIONS (3)
  - DRUG INTERACTION [None]
  - INTERNATIONAL NORMALISED RATIO INCREASED [None]
  - SPINAL HAEMATOMA [None]
